FAERS Safety Report 23861642 (Version 2)
Quarter: 2024Q2

REPORT INFORMATION
  Report Type: Spontaneous
  Country: JP (occurrence: JP)
  Receive Date: 20240516
  Receipt Date: 20240614
  Transmission Date: 20240716
  Serious: Yes (Hospitalization)
  Sender: FDA-Public Use
  Company Number: JP-002147023-NVSJ2024JP005577

PATIENT
  Age: 18 Year
  Sex: Female

DRUGS (1)
  1. COSENTYX [Suspect]
     Active Substance: SECUKINUMAB
     Indication: Psoriatic arthropathy
     Dosage: UNK
     Route: 058

REACTIONS (3)
  - Feeding disorder [Unknown]
  - Psoriatic arthropathy [Unknown]
  - Pain [Unknown]
